FAERS Safety Report 4389273-1 (Version None)
Quarter: 2004Q2

REPORT INFORMATION
  Report Type: 
  Country: None (occurrence: None)
  Receive Date: 20040628
  Receipt Date: 20040618
  Transmission Date: 20050107
  Serious: Yes (Death, Hospitalization, Other)
  Sender: FDA-Public Use
  Company Number: 2004-06-0568

PATIENT
  Age: 35 Year
  Sex: Male

DRUGS (1)
  1. CELESTONE [Suspect]
     Indication: HYPERSENSITIVITY
     Dosage: 1 AMPULE INTRAMUSCULAR
     Route: 030
     Dates: start: 20040606, end: 20040606

REACTIONS (10)
  - BLOOD GLUCOSE INCREASED [None]
  - CELLULITIS GANGRENOUS [None]
  - DIFFICULTY IN WALKING [None]
  - DISSEMINATED INTRAVASCULAR COAGULATION [None]
  - INJECTION SITE ABSCESS [None]
  - INJECTION SITE PAIN [None]
  - NECROTISING FASCIITIS [None]
  - PAIN IN EXTREMITY [None]
  - RENAL FAILURE ACUTE [None]
  - SEPSIS [None]
